FAERS Safety Report 5890341-3 (Version None)
Quarter: 2008Q3

REPORT INFORMATION
  Report Type: 
  Country: None (occurrence: None)
  Receive Date: 20080918
  Receipt Date: 20080909
  Transmission Date: 20090109
  Serious: Yes (Hospitalization)
  Sender: FDA-Public Use
  Company Number: 2007BI020663

PATIENT
  Age: 61 Year
  Sex: Female

DRUGS (1)
  1. AVONEX [Suspect]
     Indication: MULTIPLE SCLEROSIS
     Dosage: 30 UG; QW; IM
     Route: 030
     Dates: start: 20070516

REACTIONS (6)
  - CONDITION AGGRAVATED [None]
  - ENURESIS [None]
  - FALL [None]
  - MULTIPLE SCLEROSIS [None]
  - SENSATION OF HEAVINESS [None]
  - SOMNOLENCE [None]
